FAERS Safety Report 15579587 (Version 1)
Quarter: 2018Q4

REPORT INFORMATION
  Report Type: Spontaneous
  Country: US (occurrence: US)
  Receive Date: 20181102
  Receipt Date: 20181102
  Transmission Date: 20190205
  Serious: Yes (Hospitalization)
  Sender: FDA-Public Use
  Company Number: US-LANNETT COMPANY, INC.-US-2018LAN001261

PATIENT
  Age: 34 Year
  Sex: Female

DRUGS (2)
  1. BUPRENORPHINE AND NALOXONE [Suspect]
     Active Substance: BUPRENORPHINE\NALOXONE
     Indication: DRUG WITHDRAWAL MAINTENANCE THERAPY
     Dosage: 4 MG, UNK
     Route: 060
  2. BUPRENORPHINE AND NALOXONE [Suspect]
     Active Substance: BUPRENORPHINE\NALOXONE
     Dosage: 2 MG, EVERY 4 HOUR (ADDITIONAL DOSE)

REACTIONS (1)
  - Stress cardiomyopathy [Recovered/Resolved]
